FAERS Safety Report 9312158 (Version 1)
Quarter: 2013Q2

REPORT INFORMATION
  Report Type: Report from Study
  Country: PT (occurrence: PT)
  Receive Date: 20130528
  Receipt Date: 20130528
  Transmission Date: 20140414
  Serious: Yes (Other)
  Sender: FDA-Public Use
  Company Number: PT-BAYER-2013-063587

PATIENT
  Age: 54 Year
  Sex: Female

DRUGS (9)
  1. BETAFERON [Suspect]
     Indication: SECONDARY PROGRESSIVE MULTIPLE SCLEROSIS
     Dosage: 250 ?G, QOD
     Dates: start: 20090801
  2. FLUOXETINE [Concomitant]
  3. VALDOXAN [Concomitant]
  4. ALPRAZOLAM [Concomitant]
  5. CLOPIDOGREL [Concomitant]
  6. LISINOPRIL [Concomitant]
  7. CONCOR [Concomitant]
  8. DITROPAN [Concomitant]
  9. LIORESAL [Concomitant]

REACTIONS (3)
  - Myocardial infarction [Recovered/Resolved]
  - Hypertension [Recovered/Resolved]
  - Pain [Recovered/Resolved]
